FAERS Safety Report 14217345 (Version 7)
Quarter: 2018Q3

REPORT INFORMATION
  Report Type: Report from Study
  Country: None (occurrence: US)
  Receive Date: 20171123
  Receipt Date: 20180725
  Transmission Date: 20181010
  Serious: Yes (Other)
  Sender: FDA-Public Use
  Company Number: US-ABBVIE-17K-163-2166667-00

PATIENT
  Age: 67 Year
  Sex: Male
  Weight: 93.07 kg

DRUGS (4)
  1. METOPROLOL. [Suspect]
     Active Substance: METOPROLOL
     Indication: PRODUCT USED FOR UNKNOWN INDICATION
     Route: 065
  2. ACETAMINOPHEN. [Concomitant]
     Active Substance: ACETAMINOPHEN
     Indication: PRODUCT USED FOR UNKNOWN INDICATION
  3. HUMIRA [Suspect]
     Active Substance: ADALIMUMAB
     Indication: PSORIATIC ARTHROPATHY
     Route: 058
  4. HUMIRA [Suspect]
     Active Substance: ADALIMUMAB
     Indication: PSORIASIS
     Route: 058
     Dates: start: 20170614

REACTIONS (9)
  - Heart rate decreased [Recovered/Resolved]
  - Accident [Unknown]
  - Accidental overdose [Unknown]
  - Fall [Unknown]
  - Drug effect delayed [Recovering/Resolving]
  - Intracardiac thrombus [Not Recovered/Not Resolved]
  - Nail ridging [Not Recovered/Not Resolved]
  - Rotator cuff syndrome [Recovered/Resolved]
  - Psoriasis [Not Recovered/Not Resolved]

NARRATIVE: CASE EVENT DATE: 2017
